FAERS Safety Report 6478122-3 (Version None)
Quarter: 2009Q4

REPORT INFORMATION
  Report Type: 
  Country: None (occurrence: None)
  Receive Date: 20091207
  Receipt Date: 20090317
  Transmission Date: 20100525
  Serious: No
  Sender: FDA-Public Use
  Company Number: US-AMGEN-KDL330483

PATIENT
  Sex: Female

DRUGS (15)
  1. ENBREL [Suspect]
     Indication: PSORIASIS
     Route: 058
     Dates: start: 20081230, end: 20090115
  2. LITHIUM [Concomitant]
  3. VALPROIC ACID [Concomitant]
  4. UNSPECIFIED MEDICATION [Concomitant]
  5. PROZAC [Concomitant]
  6. DILAUDID [Concomitant]
  7. PROVIGIL [Concomitant]
  8. STRATTERA [Concomitant]
     Dates: start: 20060101
  9. ZYPREXA [Concomitant]
  10. RESTORIL [Concomitant]
  11. KLONOPIN [Concomitant]
  12. ZOFRAN [Concomitant]
  13. LEVOTHYROXINE SODIUM [Concomitant]
  14. VITAMIN B-12 [Concomitant]
  15. FLEXERIL [Concomitant]

REACTIONS (4)
  - ABASIA [None]
  - ACCIDENTAL OVERDOSE [None]
  - MUSCLE SPASMS [None]
  - PAIN IN EXTREMITY [None]
